FAERS Safety Report 6428627-6 (Version None)
Quarter: 2009Q4

REPORT INFORMATION
  Report Type: 
  Country: None (occurrence: None)
  Receive Date: 20091105
  Receipt Date: 20091026
  Transmission Date: 20100525
  Serious: Yes (Other)
  Sender: FDA-Public Use
  Company Number: US-PFIZER INC-2009289573

PATIENT
  Sex: Female
  Weight: 95 kg

DRUGS (3)
  1. PROCARDIA [Suspect]
     Indication: HYPERTENSION
     Dosage: 30 MG, 1X/DAY
  2. NIFEDIPINE [Suspect]
     Indication: HYPERTENSION
     Dosage: 30 MG, 1X/DAY
  3. LIPITOR [Suspect]
     Indication: BLOOD CHOLESTEROL INCREASED
     Dosage: UNK

REACTIONS (5)
  - ARTHRALGIA [None]
  - BLOOD CHOLESTEROL INCREASED [None]
  - BLOOD PRESSURE INADEQUATELY CONTROLLED [None]
  - HEADACHE [None]
  - ULCER [None]
